FAERS Safety Report 19661760 (Version 1)
Quarter: 2021Q3

REPORT INFORMATION
  Report Type: Spontaneous
  Country: US (occurrence: US)
  Receive Date: 20210805
  Receipt Date: 20210805
  Transmission Date: 20211014
  Serious: Yes (Other)
  Sender: FDA-Public Use
  Company Number: US-ACCORD-203504

PATIENT
  Age: 58 Year
  Sex: Female
  Weight: 72.57 kg

DRUGS (4)
  1. BYDUREON [Concomitant]
     Active Substance: EXENATIDE
  2. METFORMIN [Concomitant]
     Active Substance: METFORMIN HYDROCHLORIDE
  3. INVOKANA [Concomitant]
     Active Substance: CANAGLIFLOZIN
  4. DOCETAXEL ACCORD [Suspect]
     Active Substance: DOCETAXEL
     Indication: BREAST CANCER
     Dosage: DOSAGE: 80?475 MG
     Dates: start: 20130826, end: 20131213

REACTIONS (1)
  - Alopecia [Not Recovered/Not Resolved]

NARRATIVE: CASE EVENT DATE: 2013
